FAERS Safety Report 8881979 (Version 1)
Quarter: 2012Q4

REPORT INFORMATION
  Report Type: 
  Country: IR (occurrence: IR)
  Receive Date: 20121101
  Receipt Date: 20121101
  Transmission Date: 20130627
  Serious: Yes (Other)
  Sender: FDA-Public Use
  Company Number: PHHY2012IR097962

PATIENT
  Age: 7 Year
  Sex: Male

DRUGS (4)
  1. BACLOFEN [Suspect]
  2. CLONAZEPAM [Suspect]
  3. TRIHEXYPHENIDYL [Suspect]
  4. LEVODOPA [Suspect]

REACTIONS (1)
  - General physical health deterioration [Unknown]
